FAERS Safety Report 8791270 (Version 1)
Quarter: 2012Q4

REPORT INFORMATION
  Report Type: Spontaneous
  Country: GB (occurrence: None)
  Receive Date: 20120911
  Receipt Date: 20120911
  Transmission Date: 20130627
  Serious: Yes (Other)
  Sender: FDA-Public Use
  Company Number: VAL_00817_2012

PATIENT
  Age: 23 Year
  Sex: Male

DRUGS (1)
  1. CARBAMAZEPINE [Suspect]
     Indication: EPILEPSY

REACTIONS (7)
  - Drug reaction with eosinophilia and systemic symptoms [None]
  - Rash maculo-papular [None]
  - Urticaria [None]
  - Eosinophilia [None]
  - Hepatic function abnormal [None]
  - Headache [None]
  - Pyrexia [None]
